FAERS Safety Report 18492913 (Version 18)
Quarter: 2024Q1

REPORT INFORMATION
  Report Type: Other
  Country: DE (occurrence: None)
  Receive Date: 20201112
  Receipt Date: 20240117
  Transmission Date: 20240410
  Serious: Yes (Other)
  Sender: FDA-Public Use
  Company Number: DE-ROCHE-2355575

PATIENT
  Age: 31 Year
  Sex: Female

DRUGS (8)
  1. OCREVUS [Suspect]
     Active Substance: OCRELIZUMAB
     Indication: Relapsing-remitting multiple sclerosis
     Dosage: SUBSEQUENT DOSE: 16/JUL/2019, 600MG FOR 168 DAYS, 02/JUL/2019, 600 MG FOR 182 DAYS
     Route: 042
     Dates: start: 20190702
  2. OCREVUS [Suspect]
     Active Substance: OCRELIZUMAB
     Dosage: NEXT DOSE WAS RECEIVED ON 13/OCT/2020
     Route: 042
     Dates: start: 20200514
  3. OCREVUS [Suspect]
     Active Substance: OCRELIZUMAB
     Route: 042
     Dates: start: 20201013
  4. OCREVUS [Suspect]
     Active Substance: OCRELIZUMAB
     Dosage: SUBSEQUENT DOSE: 16/JUL/2019, 600MG FOR 168 DAYS
     Route: 042
     Dates: start: 20190716
  5. CORTISONE [Suspect]
     Active Substance: CORTISONE
     Indication: Premedication
     Route: 065
  6. LEVODOPA [Concomitant]
     Active Substance: LEVODOPA
     Dosage: 100 MG/ 25 MG
  7. ATTEMPTA [Concomitant]
     Indication: Contraception
  8. PACLITAXEL [Concomitant]
     Active Substance: PACLITAXEL

REACTIONS (18)
  - Urinary tract infection bacterial [Recovered/Resolved]
  - Magnetic resonance imaging spinal abnormal [Not Recovered/Not Resolved]
  - Agitation [Recovered/Resolved]
  - Fatigue [Recovered/Resolved]
  - Throat irritation [Recovered/Resolved]
  - Joint swelling [Recovered/Resolved]
  - Injection site swelling [Recovered/Resolved]
  - SARS-CoV-2 antibody test negative [Recovered/Resolved]
  - Pain in extremity [Recovered/Resolved]
  - Headache [Recovered/Resolved]
  - Chills [Recovered/Resolved]
  - Listless [Recovered/Resolved]
  - Pyrexia [Unknown]
  - B-lymphocyte count increased [Recovered/Resolved]
  - Hypoaesthesia [Recovering/Resolving]
  - B-lymphocyte count decreased [Recovered/Resolved]
  - Fatigue [Recovered/Resolved]
  - Restless legs syndrome [Not Recovered/Not Resolved]

NARRATIVE: CASE EVENT DATE: 20190702
